FAERS Safety Report 5771702-X (Version None)
Quarter: 2008Q2

REPORT INFORMATION
  Report Type: 
  Country: None (occurrence: None)
  Receive Date: 20080613
  Receipt Date: 20080609
  Transmission Date: 20081010
  Serious: Yes (Hospitalization, Other)
  Sender: FDA-Public Use
  Company Number: DE-BRISTOL-MYERS SQUIBB COMPANY-14140057

PATIENT
  Age: 68 Year
  Sex: Male
  Weight: 84 kg

DRUGS (3)
  1. SPRYCEL [Suspect]
     Indication: CHRONIC MYELOID LEUKAEMIA
     Dosage: BID FROM 01APR07 TO 28AUG07
     Route: 048
     Dates: start: 20070828
  2. ALLOPURINOL [Concomitant]
     Indication: GOUT
     Dosage: ALLOPURINOL 300MG TABLET HALF TABLET IN AM.
     Route: 048
  3. GABAPENTIN [Concomitant]
     Indication: NEURALGIA
     Dosage: GABAPENTIN DURA-THERAPY
     Route: 048
     Dates: start: 20070801

REACTIONS (4)
  - ARTHRALGIA [None]
  - MALIGNANT NEOPLASM PROGRESSION [None]
  - NEURALGIA [None]
  - OSTEONECROSIS [None]
